FAERS Safety Report 14141815 (Version 1)
Quarter: 2017Q4

REPORT INFORMATION
  Report Type: Spontaneous
  Country: ES (occurrence: ES)
  Receive Date: 20171030
  Receipt Date: 20171030
  Transmission Date: 20180321
  Serious: Yes (Life-Threatening, Hospitalization)
  Sender: FDA-Public Use
  Company Number: ES-ROCHE-2015281

PATIENT
  Age: 75 Year
  Sex: Female

DRUGS (1)
  1. ACTILYSE [Suspect]
     Active Substance: ALTEPLASE
     Indication: ISCHAEMIC STROKE
     Dosage: 1 VIAL 20MG PLUS
     Route: 042
     Dates: start: 20151208, end: 20151208

REACTIONS (1)
  - Cerebral haemorrhage [Recovered/Resolved with Sequelae]
